FAERS Safety Report 22242962 (Version 1)
Quarter: 2023Q2

REPORT INFORMATION
  Report Type: Spontaneous
  Country: CN (occurrence: CN)
  Receive Date: 20230424
  Receipt Date: 20230424
  Transmission Date: 20230721
  Serious: Yes (Other)
  Sender: FDA-Public Use
  Company Number: None

PATIENT
  Age: 72 Year
  Sex: Female
  Weight: 45 kg

DRUGS (4)
  1. CYCLOPHOSPHAMIDE [Suspect]
     Active Substance: CYCLOPHOSPHAMIDE
     Indication: Breast cancer female
     Dosage: 0.75 G, QD, DILUTED WITH 50 ML 0.9% SODIUM CHLORIDE, AS PART OF COMBINED CHEMOTHERAPY
     Route: 041
     Dates: start: 20230321, end: 20230321
  2. SODIUM CHLORIDE [Suspect]
     Active Substance: SODIUM CHLORIDE
     Indication: Medication dilution
     Dosage: 50 ML (0.9%), QD, USED TO DILUTE 0.75 G CYCLOPHOSPHAMIDE, AS PART OF COMBINED CHEMOTHERAPY, FORMULAT
     Route: 041
     Dates: start: 20230321, end: 20230321
  3. SODIUM CHLORIDE [Suspect]
     Active Substance: SODIUM CHLORIDE
     Dosage: 100 ML, (0.9%), QD, USED TO DILUTE 110 MG EPIRUBICIN HYDROCHLORIDE, AS PART OF COMBINED CHEMOTHERAPY
     Route: 041
     Dates: start: 20230321, end: 20230321
  4. EPIRUBICIN HYDROCHLORIDE [Suspect]
     Active Substance: EPIRUBICIN HYDROCHLORIDE
     Indication: Breast cancer female
     Dosage: 110 MG, QD, DILUTED WITH 100 ML 0.9% SODIUM CHLORIDE, AS PART OF COMBINED CHEMOTHERAPY
     Route: 041
     Dates: start: 20230321, end: 20230321

REACTIONS (2)
  - White blood cell count decreased [Recovered/Resolved]
  - Asthenia [Recovering/Resolving]

NARRATIVE: CASE EVENT DATE: 20230401
